FAERS Safety Report 9457852 (Version 1)
Quarter: 2013Q3

REPORT INFORMATION
  Report Type: Spontaneous
  Country: DE (occurrence: None)
  Receive Date: 20130812
  Receipt Date: 20130812
  Transmission Date: 20140515
  Serious: Yes (Hospitalization, Other)
  Sender: FDA-Public Use
  Company Number: GER/GER/13/0033931

PATIENT
  Sex: Female
  Weight: 2.63 kg

DRUGS (4)
  1. LAMOTRIGINE (LAMOTRIGINE) [Suspect]
     Dosage: 1 D
     Route: 064
     Dates: start: 20080211, end: 20081017
  2. MORPHINE [Suspect]
     Indication: PRODUCT USED FOR UNKNOWN INDICATION
     Dosage: 1 IN 1 HR
     Dates: start: 20080926, end: 20081015
  3. EUTHYROX (LEVOTHYROXINE SODIUM)(TABLET)(LEVOTHYROXINE SODIUM) [Suspect]
     Dosage: 1 IN 1 D
     Route: 064
     Dates: start: 20080211, end: 20081017
  4. FOLIC ACID [Concomitant]

REACTIONS (5)
  - Neonatal tachypnoea [None]
  - Feeding disorder [None]
  - Hypoglycaemia [None]
  - Weight decreased [None]
  - Maternal drugs affecting foetus [None]
